FAERS Safety Report 5926205-6 (Version None)
Quarter: 2008Q4

REPORT INFORMATION
  Report Type: 
  Country: None (occurrence: None)
  Receive Date: 20081017
  Receipt Date: 20081009
  Transmission Date: 20090506
  Serious: Yes (Hospitalization, Other)
  Sender: FDA-Public Use
  Company Number: PAR_02334_2008

PATIENT
  Sex: Female
  Weight: 39.4629 kg

DRUGS (7)
  1. MEGACE ES [Suspect]
     Indication: WEIGHT DECREASED
     Dosage: DF
     Dates: start: 20070101, end: 20071001
  2. MEGACE ES [Suspect]
     Indication: WEIGHT DECREASED
     Dosage: DF
     Dates: start: 20080425, end: 20080821
  3. PREVACID [Concomitant]
  4. DILANTIN /00017402/ [Concomitant]
  5. CENTRUM SILVER /01292501/ [Concomitant]
  6. VICON-C [Concomitant]
  7. MIRALAX [Concomitant]

REACTIONS (11)
  - ABDOMINAL PAIN [None]
  - ANAEMIA [None]
  - HAEMATEMESIS [None]
  - LEUKOCYTOSIS [None]
  - OESOPHAGITIS [None]
  - RECTAL HAEMORRHAGE [None]
  - RESTLESSNESS [None]
  - SEPSIS [None]
  - SINUSITIS [None]
  - TACHYCARDIA [None]
  - UPPER GASTROINTESTINAL HAEMORRHAGE [None]
